FAERS Safety Report 5103823-9 (Version None)
Quarter: 2006Q3

REPORT INFORMATION
  Report Type: 
  Country: None (occurrence: None)
  Receive Date: 20060802
  Receipt Date: 20051031
  Transmission Date: 20061208
  Serious: Yes (Hospitalization)
  Sender: FDA-Public Use
  Company Number: US-JNJFOC-20051100310

PATIENT
  Age: 3 Day
  Sex: Male
  Weight: 3 kg

DRUGS (1)
  1. ACETAMINOPHEN [Suspect]
     Indication: DRUG USE FOR UNKNOWN INDICATION
     Dosage: 4 ML; ^}8HR {=24HR^

REACTIONS (2)
  - ACCIDENTAL OVERDOSE [None]
  - IATROGENIC INJURY [None]
